FAERS Safety Report 19149433 (Version 6)
Quarter: 2023Q2

REPORT INFORMATION
  Report Type: Report from Study
  Country: JP (occurrence: JP)
  Receive Date: 20210417
  Receipt Date: 20230621
  Transmission Date: 20230722
  Serious: Yes (Life-Threatening)
  Sender: FDA-Public Use
  Company Number: JP-CELLTRION INC.-2021JP004972

PATIENT

DRUGS (26)
  1. INVESTIGATIONAL BIOSIMILARS [Suspect]
     Active Substance: INVESTIGATIONAL BIOSIMILARS
     Indication: HER2 positive gastric cancer
     Dosage: 525 MILLIGRAM, QD
     Route: 041
     Dates: start: 20201113, end: 20201113
  2. INVESTIGATIONAL BIOSIMILARS [Suspect]
     Active Substance: INVESTIGATIONAL BIOSIMILARS
     Dosage: 359.4 MILLIGRAM, QD
     Route: 041
     Dates: start: 20201221, end: 20201221
  3. INVESTIGATIONAL BIOSIMILARS [Suspect]
     Active Substance: INVESTIGATIONAL BIOSIMILARS
     Dosage: 359 MILLIGRAM, QD
     Route: 041
     Dates: start: 20210125, end: 20210125
  4. INVESTIGATIONAL BIOSIMILARS [Suspect]
     Active Substance: INVESTIGATIONAL BIOSIMILARS
     Dosage: 359 MILLIGRAM, QD
     Route: 041
     Dates: start: 20210215, end: 20210215
  5. INVESTIGATIONAL BIOSIMILARS [Suspect]
     Active Substance: INVESTIGATIONAL BIOSIMILARS
     Dosage: 359 MILLIGRAM, QD
     Route: 041
     Dates: start: 20210315, end: 20210315
  6. INVESTIGATIONAL BIOSIMILARS [Suspect]
     Active Substance: INVESTIGATIONAL BIOSIMILARS
     Dosage: 359 MILLIGRAM, QD
     Route: 041
     Dates: start: 20210405, end: 20210405
  7. INVESTIGATIONAL BIOSIMILARS [Suspect]
     Active Substance: INVESTIGATIONAL BIOSIMILARS
     Dosage: 359 MILLIGRAM, QD
     Route: 041
     Dates: start: 20210426, end: 20210426
  8. INVESTIGATIONAL BIOSIMILARS [Suspect]
     Active Substance: INVESTIGATIONAL BIOSIMILARS
     Dosage: 359 MILLIGRAM, QD
     Route: 041
     Dates: start: 20210517, end: 20210517
  9. INVESTIGATIONAL BIOSIMILARS [Suspect]
     Active Substance: INVESTIGATIONAL BIOSIMILARS
     Dosage: 352.8 MILLIGRAM, QD
     Route: 041
     Dates: start: 20210607, end: 20210607
  10. INVESTIGATIONAL BIOSIMILARS [Suspect]
     Active Substance: INVESTIGATIONAL BIOSIMILARS
     Dosage: 352.8 MILLIGRAM, QD
     Route: 041
     Dates: start: 20210628, end: 20210628
  11. INVESTIGATIONAL BIOSIMILARS [Suspect]
     Active Substance: INVESTIGATIONAL BIOSIMILARS
     Dosage: 352.8 MILLIGRAM, QD
     Route: 041
     Dates: start: 20210719, end: 20210719
  12. INVESTIGATIONAL BIOSIMILARS [Suspect]
     Active Substance: INVESTIGATIONAL BIOSIMILARS
     Dosage: 352.8 MILLIGRAM, QD
     Route: 041
     Dates: start: 20210816, end: 20210816
  13. OXALIPLATIN [Suspect]
     Active Substance: OXALIPLATIN
     Indication: HER2 positive gastric cancer
     Dosage: 134 MILLIGRAM, QD
     Route: 041
     Dates: start: 20201113, end: 20201113
  14. OXALIPLATIN [Suspect]
     Active Substance: OXALIPLATIN
     Dosage: 120 MILLIGRAM, QD
     Route: 041
     Dates: start: 20201221, end: 20201221
  15. OXALIPLATIN [Suspect]
     Active Substance: OXALIPLATIN
     Dosage: 119 MILLIGRAM, QD
     Route: 041
     Dates: start: 20210607, end: 20210607
  16. OXALIPLATIN [Suspect]
     Active Substance: OXALIPLATIN
     Dosage: 119 MILLIGRAM, QD
     Route: 041
     Dates: start: 20210628, end: 20210628
  17. OXALIPLATIN [Suspect]
     Active Substance: OXALIPLATIN
     Dosage: 119 MILLIGRAM, QD
     Route: 041
     Dates: start: 20210719, end: 20210719
  18. GIMERACIL\OTERACIL\TEGAFUR [Suspect]
     Active Substance: GIMERACIL\OTERACIL\OTERACIL POTASSIUM\TEGAFUR
     Indication: HER2 positive gastric cancer
     Dosage: 100 MILLIGRAM, QD
     Route: 048
     Dates: start: 20201113, end: 20201127
  19. GIMERACIL\OTERACIL\TEGAFUR [Suspect]
     Active Substance: GIMERACIL\OTERACIL\OTERACIL POTASSIUM\TEGAFUR
     Dosage: 100 MILLIGRAM, QD
     Route: 048
     Dates: start: 20201221, end: 20210104
  20. GIMERACIL\OTERACIL\TEGAFUR [Suspect]
     Active Substance: GIMERACIL\OTERACIL\OTERACIL POTASSIUM\TEGAFUR
     Dosage: 100 MILLIGRAM, QD
     Route: 048
     Dates: start: 20210125, end: 20210208
  21. GIMERACIL\OTERACIL\TEGAFUR [Suspect]
     Active Substance: GIMERACIL\OTERACIL\OTERACIL POTASSIUM\TEGAFUR
     Dosage: 100 MILLIGRAM, QD
     Route: 048
     Dates: start: 20210215, end: 20210301
  22. GIMERACIL\OTERACIL\TEGAFUR [Suspect]
     Active Substance: GIMERACIL\OTERACIL\OTERACIL POTASSIUM\TEGAFUR
     Dosage: 80 MILLIGRAM, QD
     Route: 048
     Dates: start: 20210607, end: 20210621
  23. GIMERACIL\OTERACIL\TEGAFUR [Suspect]
     Active Substance: GIMERACIL\OTERACIL\OTERACIL POTASSIUM\TEGAFUR
     Dosage: 80 MILLIGRAM, QD
     Route: 048
     Dates: start: 20210628, end: 20210712
  24. GIMERACIL\OTERACIL\TEGAFUR [Suspect]
     Active Substance: GIMERACIL\OTERACIL\OTERACIL POTASSIUM\TEGAFUR
     Dosage: 80 MILLIGRAM, QD
     Route: 048
     Dates: start: 20210709, end: 20210802
  25. OLMESARTAN MEDOXOMIL [Concomitant]
     Active Substance: OLMESARTAN MEDOXOMIL
     Indication: Hypertension
     Dosage: UNK
     Dates: end: 20210627
  26. FEBUXOSTAT [Concomitant]
     Active Substance: FEBUXOSTAT
     Indication: Hypertension
     Dosage: UNK
     Dates: end: 20210627

REACTIONS (11)
  - Tumour perforation [Recovered/Resolved]
  - Iron deficiency anaemia [Not Recovered/Not Resolved]
  - Constipation [Recovered/Resolved]
  - Dry eye [Recovered/Resolved]
  - Infusion related reaction [Recovered/Resolved]
  - Neutrophil count decreased [Recovered/Resolved]
  - Platelet count decreased [Recovered/Resolved]
  - White blood cell count decreased [Recovered/Resolved]
  - Overdose [Unknown]
  - Underdose [Unknown]
  - Intentional product use issue [Unknown]

NARRATIVE: CASE EVENT DATE: 20201113
